FAERS Safety Report 17771025 (Version 1)
Quarter: 2020Q2

REPORT INFORMATION
  Report Type: Spontaneous
  Country: US (occurrence: US)
  Receive Date: 20200512
  Receipt Date: 20200512
  Transmission Date: 20200714
  Serious: Yes (Life-Threatening)
  Sender: FDA-Public Use
  Company Number: None

PATIENT
  Age: 74 Year
  Sex: Female
  Weight: 82.4 kg

DRUGS (5)
  1. LEVOTHYROXINE. [Concomitant]
     Active Substance: LEVOTHYROXINE
     Dates: start: 20200508
  2. POTASSIUM [Concomitant]
     Active Substance: POTASSIUM
     Dates: start: 20200508
  3. ELIQUIS [Suspect]
     Active Substance: APIXABAN
     Indication: PULMONARY EMBOLISM
     Route: 048
     Dates: start: 20200508, end: 20200511
  4. ELIQUIS [Suspect]
     Active Substance: APIXABAN
     Indication: DEEP VEIN THROMBOSIS
     Route: 048
     Dates: start: 20200508, end: 20200511
  5. MAG OX [Concomitant]
     Active Substance: MAGNESIUM OXIDE
     Dates: start: 20200508

REACTIONS (2)
  - Haemorrhagic stroke [None]
  - Seizure [None]

NARRATIVE: CASE EVENT DATE: 20200511
